FAERS Safety Report 23180453 (Version 1)
Quarter: 2023Q4

REPORT INFORMATION
  Report Type: Spontaneous
  Country: NL (occurrence: NL)
  Receive Date: 20231114
  Receipt Date: 20231114
  Transmission Date: 20240110
  Serious: Yes (Death, Other)
  Sender: FDA-Public Use
  Company Number: NL-CELLTRION INC.-2023NL020776

PATIENT

DRUGS (15)
  1. ADALIMUMAB [Suspect]
     Active Substance: ADALIMUMAB\ISOPROPYL ALCOHOL
     Indication: Adenosine deaminase 2 deficiency
     Dosage: UNK
  2. ADALIMUMAB [Suspect]
     Active Substance: ADALIMUMAB\ISOPROPYL ALCOHOL
     Dosage: DOSAGE1: UNIT=NOT AVAILABLE
     Route: 065
  3. INFLIXIMAB [Suspect]
     Active Substance: INFLIXIMAB
     Indication: Adenosine deaminase 2 deficiency
     Dosage: UNK
  4. INFLIXIMAB [Suspect]
     Active Substance: INFLIXIMAB
     Dosage: UNK
  5. METHOTREXATE [Suspect]
     Active Substance: METHOTREXATE
     Indication: Adenosine deaminase 2 deficiency
     Dosage: ONLY 1 DOSE
  6. SIROLIMUS [Suspect]
     Active Substance: SIROLIMUS
     Indication: Adenosine deaminase 2 deficiency
  7. CYCLOSPORINE [Suspect]
     Active Substance: CYCLOSPORINE
     Indication: Non-small cell lung cancer
  8. CYCLOSPORINE [Suspect]
     Active Substance: CYCLOSPORINE
     Indication: Large granular lymphocytosis
  9. CYCLOPHOSPHAMIDE [Suspect]
     Active Substance: CYCLOPHOSPHAMIDE
     Indication: Non-small cell lung cancer
  10. CYCLOPHOSPHAMIDE [Suspect]
     Active Substance: CYCLOPHOSPHAMIDE
     Indication: Large granular lymphocytosis
  11. FILGRASTIM [Suspect]
     Active Substance: FILGRASTIM
     Indication: Adenosine deaminase 2 deficiency
     Dosage: DOSAGE1: UNIT=NOT AVAILABLE
     Route: 065
  12. METHOTREXATE [Concomitant]
     Active Substance: METHOTREXATE
     Indication: Adenosine deaminase 2 deficiency
     Dosage: ONLY 1 DOSE
  13. SIROLIMUS [Concomitant]
     Active Substance: SIROLIMUS
     Indication: Adenosine deaminase 2 deficiency
  14. CYCLOPHOSPHAMIDE [Concomitant]
     Active Substance: CYCLOPHOSPHAMIDE
  15. CYCLOSPORINE [Concomitant]
     Active Substance: CYCLOSPORINE

REACTIONS (4)
  - Non-small cell lung cancer [Fatal]
  - Infection [Unknown]
  - Drug ineffective for unapproved indication [Unknown]
  - Off label use [Unknown]
